FAERS Safety Report 6011784-3 (Version None)
Quarter: 2008Q4

REPORT INFORMATION
  Report Type: 
  Country: None (occurrence: None)
  Receive Date: 20081218
  Receipt Date: 20081211
  Transmission Date: 20090506
  Serious: Yes (Other)
  Sender: FDA-Public Use
  Company Number: US-ABBOTT-06P-163-0335092-00

PATIENT
  Sex: Female
  Weight: 85 kg

DRUGS (41)
  1. HUMIRA [Suspect]
     Indication: CROHN'S DISEASE
     Route: 058
     Dates: start: 20050803
  2. MEDROXYPROGESTERONE ACETATE [Concomitant]
     Indication: MENSTRUATION IRREGULAR
     Dates: start: 20060301
  3. PANTOPRAZOLE SODIUM [Concomitant]
     Indication: DYSPEPSIA
     Dates: start: 20000101
  4. MESALAMINE [Concomitant]
     Indication: CROHN'S DISEASE
     Dates: start: 20050520, end: 20060501
  5. MESALAMINE [Concomitant]
     Dates: start: 20060501
  6. PREDNISONE TAB [Concomitant]
     Indication: CROHN'S DISEASE
     Dates: start: 20050520, end: 20050831
  7. PREDNISONE TAB [Concomitant]
     Dates: start: 20050831, end: 20070907
  8. PREDNISONE TAB [Concomitant]
     Dates: start: 20050908, end: 20050914
  9. PREDNISONE TAB [Concomitant]
     Dates: start: 20050915, end: 20050921
  10. PREDNISONE TAB [Concomitant]
     Dates: start: 20050922, end: 20050928
  11. PREDNISONE TAB [Concomitant]
     Dates: start: 20050929, end: 20051005
  12. PREDNISONE TAB [Concomitant]
     Dates: start: 20051007
  13. PREDNISONE TAB [Concomitant]
     Dates: start: 20060501, end: 20060805
  14. PREDNISONE TAB [Concomitant]
     Dates: start: 20060812
  15. LEVETIRACETAM [Concomitant]
     Indication: CONVULSION PROPHYLAXIS
     Dates: start: 20010201, end: 20060118
  16. MEDROXYPROGESTERONE ACETATE [Concomitant]
     Dates: start: 20060301
  17. TEMAZEPAM [Concomitant]
     Indication: SLEEP DISORDER THERAPY
     Dates: start: 20030101
  18. VENLAFAXINE HYDROCHLORIDE [Concomitant]
     Indication: HEADACHE
     Dates: start: 20041201
  19. PROPACET 100 [Concomitant]
     Indication: ABDOMINAL PAIN
     Dosage: 100/650
     Dates: start: 20050520
  20. LORAZEPAM [Concomitant]
     Indication: HEADACHE
     Dates: start: 20050520
  21. LORAZEPAM [Concomitant]
     Indication: ANXIETY
  22. TOCOPHEROL CONCENTRATE CAP [Concomitant]
     Indication: MEDICAL DIET
     Dates: start: 20030101
  23. ASCORBIC ACID [Concomitant]
     Indication: MEDICAL DIET
     Dates: start: 20030101, end: 20060523
  24. ANUSOL [Concomitant]
     Indication: DERMATITIS
     Dates: start: 20050715, end: 20070807
  25. ANUSOL [Concomitant]
     Dates: start: 20050801
  26. SUMATRIPTAN [Concomitant]
     Indication: MIGRAINE
     Dates: start: 20050726
  27. VITIS VINIFERA EXTRACT [Concomitant]
     Indication: PHYTOTHERAPY
     Dates: start: 20050704, end: 20060523
  28. NULEV [Concomitant]
     Indication: ABDOMINAL PAIN
     Dates: start: 20050824
  29. NULEV [Concomitant]
  30. OXYCOCET [Concomitant]
     Indication: PAIN
     Dosage: 2.5/325 MG PRN
     Dates: start: 20050904
  31. METRONIDAZOLE [Concomitant]
     Indication: ANAL ABSCESS
     Dates: start: 20050904, end: 20050909
  32. PHENERGAN HCL [Concomitant]
     Indication: NAUSEA
     Route: 050
     Dates: start: 20050928, end: 20050928
  33. PHENERGAN HCL [Concomitant]
     Dates: start: 20050929, end: 20060823
  34. PHENERGAN HCL [Concomitant]
     Indication: VOMITING
     Dates: start: 20060101
  35. LEVOFLOXACIN [Concomitant]
     Indication: KIDNEY INFECTION
     Dates: start: 20050928, end: 20051002
  36. CIPROFLOXACIN HCL [Concomitant]
     Indication: ANAL ABSCESS
     Dates: start: 20050904, end: 20050909
  37. CIPROFLOXACIN HCL [Concomitant]
     Indication: CROHN'S DISEASE
     Dates: start: 20060214, end: 20060530
  38. VENLAFAXINE HYDROCHLORIDE [Concomitant]
     Dates: start: 20050701
  39. FISH OIL [Concomitant]
     Indication: VITAMIN SUPPLEMENTATION
     Dates: start: 20051115, end: 20060523
  40. ANA MANTLE [Concomitant]
     Indication: CROHN'S DISEASE
     Dosage: LIDOCAINE 3% HYDROCORTISONE 0.5%
     Dates: start: 20060203
  41. ANA MANTLE [Concomitant]
     Indication: PROCTALGIA

REACTIONS (1)
  - VULVAL ABSCESS [None]
